FAERS Safety Report 6905301-0 (Version None)
Quarter: 2010Q3

REPORT INFORMATION
  Report Type: 
  Country: None (occurrence: None)
  Receive Date: 20100804
  Receipt Date: 20080603
  Transmission Date: 20110219
  Serious: No
  Sender: FDA-Public Use
  Company Number: US-PFIZER INC-2008048317

PATIENT
  Sex: Female
  Weight: 82.6 kg

DRUGS (4)
  1. LYRICA [Suspect]
     Indication: RHEUMATOID ARTHRITIS
     Dates: start: 20080516
  2. LYRICA [Suspect]
     Indication: FIBROMYALGIA
  3. DIUREX [Concomitant]
     Indication: FLUID RETENTION
  4. ALEVE (CAPLET) [Concomitant]

REACTIONS (4)
  - DRUG INEFFECTIVE [None]
  - DRUG INEFFECTIVE FOR UNAPPROVED INDICATION [None]
  - PAIN [None]
  - WEIGHT INCREASED [None]
